FAERS Safety Report 22932547 (Version 2)
Quarter: 2024Q1

REPORT INFORMATION
  Report Type: Report from Study
  Country: CA (occurrence: CA)
  Receive Date: 20230912
  Receipt Date: 20240116
  Transmission Date: 20240410
  Serious: Yes (Other)
  Sender: FDA-Public Use
  Company Number: CA-JNJFOC-20230913300

PATIENT
  Age: 68 Year
  Sex: Female
  Weight: 93 kg

DRUGS (1)
  1. SIMPONI [Suspect]
     Active Substance: GOLIMUMAB
     Indication: Rheumatoid arthritis
     Route: 058
     Dates: start: 20230406

REACTIONS (3)
  - Cellulitis [Not Recovered/Not Resolved]
  - Arthritis [Recovered/Resolved]
  - Cellulitis [Not Recovered/Not Resolved]
